FAERS Safety Report 4643911-4 (Version None)
Quarter: 2005Q2

REPORT INFORMATION
  Report Type: 
  Country: None (occurrence: None)
  Receive Date: 20050420
  Receipt Date: 20050404
  Transmission Date: 20051028
  Serious: Yes (Hospitalization)
  Sender: FDA-Public Use
  Company Number: 603015

PATIENT
  Age: 78 Year
  Sex: Female

DRUGS (12)
  1. GAMMAGARD S/D [Suspect]
     Indication: ANTIBODY TEST ABNORMAL
     Dosage: 50 MG; Q3W; INTRAVENOUS
     Route: 042
     Dates: start: 20050309, end: 20050330
  2. SEREVENT [Concomitant]
  3. CELEBREX [Concomitant]
  4. PRILOSEC [Concomitant]
  5. EVISTA [Concomitant]
  6. BENICAR [Concomitant]
  7. TRAZADONE [Concomitant]
  8. CALTRATE [Concomitant]
  9. MAXAIR [Concomitant]
  10. EYE DROPS [Concomitant]
  11. REGLAN [Concomitant]
  12. GAMMAGARD S/D [Suspect]

REACTIONS (11)
  - APHASIA [None]
  - BLOOD PRESSURE INCREASED [None]
  - CEREBROVASCULAR ACCIDENT [None]
  - CONFUSIONAL STATE [None]
  - DISORIENTATION [None]
  - GAIT DISTURBANCE [None]
  - HEADACHE [None]
  - HEMIPARESIS [None]
  - MIOSIS [None]
  - RESPIRATORY DISORDER [None]
  - TONGUE PARALYSIS [None]
